FAERS Safety Report 4311574-3 (Version None)
Quarter: 2004Q1

REPORT INFORMATION
  Report Type: 
  Country: None (occurrence: None)
  Receive Date: 20040302
  Receipt Date: 20040114
  Transmission Date: 20041129
  Serious: No
  Sender: FDA-Public Use
  Company Number: 200325149BWH

PATIENT
  Age: 55 Year
  Sex: Male

DRUGS (10)
  1. LEVITRA [Suspect]
     Indication: ERECTILE DYSFUNCTION
     Dosage: 5 MG, ONCE, ORAL; 5 MG, ONCE, ORAL
     Route: 048
     Dates: start: 20031001
  2. LEVITRA [Suspect]
     Indication: ERECTILE DYSFUNCTION
     Dosage: 5 MG, ONCE, ORAL; 5 MG, ONCE, ORAL
     Route: 048
     Dates: start: 20031001
  3. OXYCONTIN [Concomitant]
  4. PERCOCET [Concomitant]
  5. PRINIVIL [Concomitant]
  6. LEVOXYL [Concomitant]
  7. RELAFEN [Concomitant]
  8. DESYREL [Concomitant]
  9. ZOCOR [Concomitant]
  10. VIAGRA [Concomitant]

REACTIONS (4)
  - ERECTILE DYSFUNCTION [None]
  - FLUSHING [None]
  - NASAL CONGESTION [None]
  - PAIN IN EXTREMITY [None]
